FAERS Safety Report 18948392 (Version 2)
Quarter: 2021Q1

REPORT INFORMATION
  Report Type: Report from Study
  Country: None (occurrence: CZ)
  Receive Date: 20210226
  Receipt Date: 20210320
  Transmission Date: 20210420
  Serious: Yes (Death, Hospitalization, Other)
  Sender: FDA-Public Use
  Company Number: CZ-ABBVIE-21K-217-3789225-00

PATIENT
  Age: 66 Year
  Sex: Female

DRUGS (2)
  1. HUMIRA [Suspect]
     Active Substance: ADALIMUMAB
     Indication: RHEUMATOID ARTHRITIS
     Route: 058
     Dates: start: 20100709, end: 20200121
  2. MEDROL [Concomitant]
     Active Substance: METHYLPREDNISOLONE
     Indication: RHEUMATOID ARTHRITIS
     Route: 048
     Dates: start: 20070531

REACTIONS (4)
  - COVID-19 [Fatal]
  - Pneumonia [Unknown]
  - Ileus [Not Recovered/Not Resolved]
  - Septic shock [Unknown]

NARRATIVE: CASE EVENT DATE: 20210202
